FAERS Safety Report 9880726 (Version 1)
Quarter: 2014Q1

REPORT INFORMATION
  Report Type: Spontaneous
  Country: NL (occurrence: None)
  Receive Date: 20140205
  Receipt Date: 20140205
  Transmission Date: 20141002
  Serious: Yes (Hospitalization)
  Sender: FDA-Public Use
  Company Number: IMP_07451_2014

PATIENT
  Age: 67 Year
  Sex: Female

DRUGS (8)
  1. DEPAKINE [Suspect]
     Indication: EPILEPSY
     Dates: start: 200501
  2. AMLODIPINE [Concomitant]
  3. ASPIRIN [Concomitant]
  4. FUSIDIC ACID [Concomitant]
  5. METOPROLOL [Concomitant]
  6. OLMESARTAN [Concomitant]
  7. RANITIDINE [Concomitant]
  8. THIAMINE [Concomitant]

REACTIONS (6)
  - Gait disturbance [None]
  - Hypophagia [None]
  - Fluid intake reduced [None]
  - Glomerular filtration rate decreased [None]
  - Hyponatraemia [None]
  - Confusional state [None]
